FAERS Safety Report 7893734-8 (Version None)
Quarter: 2011Q4

REPORT INFORMATION
  Report Type: 
  Country: None (occurrence: None)
  Receive Date: 20111104
  Receipt Date: 20111026
  Transmission Date: 20120403
  Serious: Yes (Other)
  Sender: FDA-Public Use
  Company Number: PHHY2011GB94400

PATIENT
  Age: 50 Year
  Sex: Female
  Weight: 54.5 kg

DRUGS (9)
  1. VENTOLIN [Concomitant]
  2. VESICARE [Suspect]
     Indication: HYPERTONIC BLADDER
     Route: 048
     Dates: start: 20101216, end: 20110310
  3. ACETAMINOPHEN AND CODEINE PHOSPHATE [Concomitant]
  4. MICRONOR [Concomitant]
     Dosage: 350 UG/DAY
  5. TEMAZEPAM [Concomitant]
     Dosage: 5 MG, QD
  6. DIAZEPAM [Concomitant]
     Dosage: 2 MG, UNK
  7. OMEPRAZOLE [Suspect]
     Dosage: 20 MG, QD
  8. ACETAMINOPHEN WITH PROPOXYPHENE HCL TAB [Concomitant]
  9. RHINOLAST [Concomitant]
     Dosage: 140 UG/DAY

REACTIONS (6)
  - DRY EYE [None]
  - PALPITATIONS [None]
  - BURNING SENSATION [None]
  - VISION BLURRED [None]
  - SKIN SENSITISATION [None]
  - ALOPECIA [None]
